FAERS Safety Report 23681020 (Version 1)
Quarter: 2024Q1

REPORT INFORMATION
  Report Type: Spontaneous
  Country: CH (occurrence: CH)
  Receive Date: 20240328
  Receipt Date: 20240328
  Transmission Date: 20240410
  Serious: Yes (Hospitalization)
  Sender: FDA-Public Use
  Company Number: None

PATIENT
  Age: 21 Year
  Sex: Male

DRUGS (7)
  1. CLONAZEPAM [Suspect]
     Active Substance: CLONAZEPAM
     Indication: Rehabilitation therapy
     Dosage: IN TOTAL
     Dates: start: 20240214, end: 20240214
  2. QUETIAPINE [Suspect]
     Active Substance: QUETIAPINE
     Indication: Rehabilitation therapy
     Dosage: UNDETERMINED DOSE
     Dates: start: 20240214, end: 20240214
  3. PREGABALIN [Suspect]
     Active Substance: PREGABALIN
     Indication: Rehabilitation therapy
     Dosage: UNDETERMINED DOSE
     Dates: start: 20240214, end: 20240214
  4. MORPHINE [Suspect]
     Active Substance: MORPHINE
     Indication: Rehabilitation therapy
     Dosage: IN TOTAL
     Dates: start: 20240214, end: 20240214
  5. CANNABIDIOL\HERBALS [Suspect]
     Active Substance: CANNABIDIOL\HERBALS
     Indication: Rehabilitation therapy
     Dosage: UNDETERMINED DOSE
     Dates: start: 20240214, end: 20240214
  6. SERTRALINE [Suspect]
     Active Substance: SERTRALINE HYDROCHLORIDE
     Indication: Rehabilitation therapy
  7. QUETIAPINE [Concomitant]
     Active Substance: QUETIAPINE
     Dosage: DAILY DOSE: 400 MILLIGRAM

REACTIONS (5)
  - Depressed level of consciousness [Recovered/Resolved]
  - Miosis [Recovered/Resolved]
  - Tachycardia [Recovered/Resolved]
  - Urinary retention [Recovered/Resolved]
  - Overdose [Recovered/Resolved]

NARRATIVE: CASE EVENT DATE: 20240214
